FAERS Safety Report 4681564-X (Version None)
Quarter: 2005Q2

REPORT INFORMATION
  Report Type: 
  Country: None (occurrence: None)
  Receive Date: 20050602
  Receipt Date: 20050519
  Transmission Date: 20051028
  Serious: Yes (Other)
  Sender: FDA-Public Use
  Company Number: 2005077703

PATIENT
  Age: 33 Year
  Sex: Female

DRUGS (1)
  1. PREDNISONE [Suspect]
     Indication: ILL-DEFINED DISORDER

REACTIONS (7)
  - AMNESIA [None]
  - BRAIN NEOPLASM [None]
  - COMPLEX PARTIAL SEIZURES [None]
  - DELUSION [None]
  - DRY MOUTH [None]
  - VISUAL DISTURBANCE [None]
  - WEIGHT INCREASED [None]
